FAERS Safety Report 14461904 (Version 2)
Quarter: 2021Q1

REPORT INFORMATION
  Report Type: Other
  Country: US (occurrence: US)
  Receive Date: 20180130
  Receipt Date: 20210125
  Transmission Date: 20210419
  Serious: No
  Sender: FDA-Public Use
  Company Number: US-ACORDA-ACO_144231_2017

PATIENT
  Sex: Female

DRUGS (11)
  1. ANTIBIOTIC [Suspect]
     Active Substance: UNSPECIFIED INGREDIENT
     Indication: PRODUCT USED FOR UNKNOWN INDICATION
     Dosage: UNK
     Route: 065
  2. TYSABRI [Suspect]
     Active Substance: NATALIZUMAB
     Indication: MULTIPLE SCLEROSIS
     Dosage: 300 MILLIGRAM, WEEKLY (1 IN 4 WEEKS)
     Route: 042
     Dates: start: 20160714
  3. AMPYRA [Suspect]
     Active Substance: DALFAMPRIDINE
     Indication: MULTIPLE SCLEROSIS
     Dosage: 1 DOSAGE FORM, Q 12 HRS
     Route: 048
     Dates: start: 20190606
  4. TYSABRI [Suspect]
     Active Substance: NATALIZUMAB
     Dosage: 300 MILLIGRAM, (1 IN 6 WEEKS)
     Route: 042
  5. AZELASTINE. [Concomitant]
     Active Substance: AZELASTINE HYDROCHLORIDE
     Indication: PRODUCT USED FOR UNKNOWN INDICATION
     Dosage: 137 MCG(.1%)SPRAY EVERY DAY BY INTRANASAL ROUTE IN THE MORNING
     Route: 065
  6. TERBINAFINE. [Concomitant]
     Active Substance: TERBINAFINE
     Indication: PRODUCT USED FOR UNKNOWN INDICATION
     Dosage: 250 MG, QD
     Route: 048
  7. BACLOFEN. [Concomitant]
     Active Substance: BACLOFEN
     Indication: PRODUCT USED FOR UNKNOWN INDICATION
     Dosage: 10 MILLIGRAM
     Route: 065
  8. TYSABRI [Suspect]
     Active Substance: NATALIZUMAB
     Dosage: (1 IN 8 WEEKS)
     Route: 065
  9. TYSABRI [Suspect]
     Active Substance: NATALIZUMAB
     Dosage: (1 IN 8 WEEKS)
     Route: 065
  10. OXYBUTYNIN. [Concomitant]
     Active Substance: OXYBUTYNIN CHLORIDE
     Indication: PRODUCT USED FOR UNKNOWN INDICATION
     Dosage: 2 DOSAGES
     Route: 048
  11. FLUTICASONE. [Concomitant]
     Active Substance: FLUTICASONE
     Indication: PRODUCT USED FOR UNKNOWN INDICATION
     Dosage: 50MCG/ACTUATION NASAL SPRAY, INHALE 2 SPRAY, EVERY DAY, VIA INTRANASAL ROUTE

REACTIONS (6)
  - Peripheral swelling [Unknown]
  - C-reactive protein increased [Unknown]
  - Drug ineffective [Unknown]
  - Rash [Unknown]
  - Joint swelling [Unknown]
  - Vitiligo [Unknown]
